FAERS Safety Report 4350673-7 (Version None)
Quarter: 2004Q2

REPORT INFORMATION
  Report Type: 
  Country: None (occurrence: None)
  Receive Date: 20040429
  Receipt Date: 20040414
  Transmission Date: 20050107
  Serious: Yes (Hospitalization, Other)
  Sender: FDA-Public Use
  Company Number: A-CH2004-05800

PATIENT
  Age: 71 Year
  Sex: Female
  Weight: 77 kg

DRUGS (12)
  1. TRACLEER [Suspect]
     Indication: PULMONARY HYPERTENSION
     Dosage: 62.5 MG, BID, ORAL; SEE IMAGE
     Route: 048
     Dates: start: 20040119, end: 20040224
  2. TRACLEER [Suspect]
     Indication: PULMONARY HYPERTENSION
     Dosage: 62.5 MG, BID, ORAL; SEE IMAGE
     Route: 048
     Dates: start: 20040225, end: 20040401
  3. TRACLEER [Suspect]
     Indication: PULMONARY HYPERTENSION
     Dosage: 62.5 MG, BID, ORAL; SEE IMAGE
     Route: 048
     Dates: start: 20040405, end: 20040414
  4. BERAPROST (BERAPROST) [Concomitant]
  5. ELTROXIN (LEVOTHYROXINE SODIUM) [Concomitant]
  6. MNIIDIAB (GLIPIZIDE) [Concomitant]
  7. ZURCALE (PANTOPRAZOLE SODUIM) [Concomitant]
  8. LASIX [Concomitant]
  9. ALDACTONE (SPIRONOLACTONE, ALTIZIDE) [Concomitant]
  10. CEDUR (BEZAFIBRATE) [Concomitant]
  11. ATACAND [Concomitant]
  12. VALIUM [Concomitant]

REACTIONS (4)
  - ABDOMINAL PAIN [None]
  - DIARRHOEA [None]
  - SCIATICA [None]
  - SPINAL COMPRESSION FRACTURE [None]
